FAERS Safety Report 10349166 (Version 17)
Quarter: 2016Q2

REPORT INFORMATION
  Report Type: Report from Study
  Country: CA (occurrence: CA)
  Receive Date: 20140730
  Receipt Date: 20160513
  Transmission Date: 20160815
  Serious: Yes (Death, Hospitalization, Other)
  Sender: FDA-Public Use
  Company Number: CA-ROCHE-1439832

PATIENT
  Age: 80 Year
  Sex: Female
  Weight: 62.5 kg

DRUGS (8)
  1. TRAZODONE [Concomitant]
     Active Substance: TRAZODONE HYDROCHLORIDE
  2. ACTEMRA [Suspect]
     Active Substance: TOCILIZUMAB
     Indication: TEMPORAL ARTERITIS
     Route: 042
     Dates: start: 20140524, end: 2016
  3. ACTEMRA [Suspect]
     Active Substance: TOCILIZUMAB
     Route: 042
     Dates: start: 20140828
  4. ACETYLSALICYLIC ACID [Concomitant]
     Active Substance: ASPIRIN
  5. ACTEMRA [Suspect]
     Active Substance: TOCILIZUMAB
     Route: 042
     Dates: start: 20150715
  6. PREDNISONE. [Suspect]
     Active Substance: PREDNISONE
     Indication: PRODUCT USED FOR UNKNOWN INDICATION
     Dosage: DOSE LESS THAN 20MG PER DAY
     Route: 065
  7. FUROSEMIDE. [Concomitant]
     Active Substance: FUROSEMIDE
  8. PANTOPRAZOLE [Concomitant]
     Active Substance: PANTOPRAZOLE SODIUM

REACTIONS (30)
  - Oedema peripheral [Not Recovered/Not Resolved]
  - Alanine aminotransferase increased [Recovered/Resolved]
  - Cough [Not Recovered/Not Resolved]
  - Inflammation [Unknown]
  - Oxygen saturation decreased [Unknown]
  - Pneumonia [Unknown]
  - Hepatic steatosis [Recovering/Resolving]
  - Oral infection [Unknown]
  - Weight increased [Unknown]
  - Breath sounds abnormal [Unknown]
  - Tuberculosis [Not Recovered/Not Resolved]
  - Pulmonary oedema [Unknown]
  - Hepatic steatosis [Not Recovered/Not Resolved]
  - Lung disorder [Unknown]
  - Eye inflammation [Not Recovered/Not Resolved]
  - Interstitial lung disease [Unknown]
  - Temporal arteritis [Unknown]
  - Hepatic congestion [Unknown]
  - Glaucoma [Unknown]
  - Gait disturbance [Unknown]
  - Blood cholesterol increased [Unknown]
  - Blood pressure diastolic decreased [Unknown]
  - Visual acuity reduced [Unknown]
  - Cardiac failure congestive [Unknown]
  - Hepatomegaly [Not Recovered/Not Resolved]
  - Contusion [Not Recovered/Not Resolved]
  - Off label use [Unknown]
  - Rash [Not Recovered/Not Resolved]
  - Death [Fatal]
  - Aspartate aminotransferase increased [Recovered/Resolved]

NARRATIVE: CASE EVENT DATE: 20140706
